FAERS Safety Report 23565877 (Version 1)
Quarter: 2024Q1

REPORT INFORMATION
  Report Type: Spontaneous
  Country: US (occurrence: US)
  Receive Date: 20240226
  Receipt Date: 20240226
  Transmission Date: 20240409
  Serious: Yes (Hospitalization)
  Sender: FDA-Public Use
  Company Number: US-IGSA-BIG0027723

PATIENT
  Sex: Female

DRUGS (1)
  1. XEMBIFY [Suspect]
     Active Substance: HUMAN IMMUNOGLOBULIN G
     Indication: Product used for unknown indication
     Dosage: UNK, Q.WK.
     Route: 058

REACTIONS (12)
  - Blood sodium decreased [Unknown]
  - Nausea [Unknown]
  - Vomiting [Unknown]
  - Localised oedema [Unknown]
  - Oedema peripheral [Unknown]
  - Weight decreased [Unknown]
  - Urinary tract infection [Unknown]
  - Functional gastrointestinal disorder [Unknown]
  - Dysbiosis [Unknown]
  - Hormone level abnormal [Unknown]
  - Constipation [Unknown]
  - Pollakiuria [Unknown]
